FAERS Safety Report 9867142 (Version 1)
Quarter: 2014Q1

REPORT INFORMATION
  Report Type: Spontaneous
  Country: US (occurrence: None)
  Receive Date: 20140203
  Receipt Date: 20140203
  Transmission Date: 20141002
  Serious: No
  Sender: FDA-Public Use
  Company Number: None

PATIENT
  Sex: Female

DRUGS (1)
  1. ICLUSIG [Suspect]
     Indication: LEUKAEMIA
     Route: 048
     Dates: start: 20130708

REACTIONS (1)
  - Rash [None]
